FAERS Safety Report 18180851 (Version 1)
Quarter: 2020Q3

REPORT INFORMATION
  Report Type: Spontaneous
  Country: US (occurrence: US)
  Receive Date: 20200821
  Receipt Date: 20200821
  Transmission Date: 20201103
  Serious: No
  Sender: FDA-Public Use
  Company Number: US-JNJFOC-20200824308

PATIENT
  Age: 91 Year
  Sex: Male

DRUGS (1)
  1. IMODIUM [Suspect]
     Active Substance: LOPERAMIDE HYDROCHLORIDE
     Indication: ANAL INCONTINENCE
     Dosage: 1 TO 2
     Route: 065

REACTIONS (3)
  - Product packaging issue [Unknown]
  - Off label use [Unknown]
  - Product use in unapproved indication [Unknown]
